FAERS Safety Report 4286492-X (Version None)
Quarter: 2004Q1

REPORT INFORMATION
  Report Type: 
  Country: None (occurrence: None)
  Receive Date: 20040204
  Receipt Date: 20040121
  Transmission Date: 20041129
  Serious: Yes (Death)
  Sender: FDA-Public Use
  Company Number: 2004IC000008

PATIENT
  Age: 17 Year
  Sex: Male

DRUGS (2)
  1. DALMANE [Suspect]
     Dosage: ORAL
     Route: 048
  2. ETHYLENE GLYCOL [Suspect]
     Dosage: ORAL
     Route: 048

REACTIONS (12)
  - ACIDOSIS [None]
  - ALCOHOL USE [None]
  - BRAIN HERNIATION [None]
  - BRAIN STEM INFARCTION [None]
  - CEREBRAL INFARCTION [None]
  - CEREBRAL ISCHAEMIA [None]
  - CHEMICAL POISONING [None]
  - COMPLETED SUICIDE [None]
  - DEPRESSED LEVEL OF CONSCIOUSNESS [None]
  - DYSARTHRIA [None]
  - INTENTIONAL OVERDOSE [None]
  - QUADRIPARESIS [None]
